FAERS Safety Report 14109225 (Version 3)
Quarter: 2018Q1

REPORT INFORMATION
  Report Type: Spontaneous
  Country: DE (occurrence: JP)
  Receive Date: 20171019
  Receipt Date: 20180223
  Transmission Date: 20180508
  Serious: Yes (Hospitalization)
  Sender: FDA-Public Use
  Company Number: JP-MERZ NORTH AMERICA, INC.-17MRZ-00311

PATIENT
  Age: 68 Year
  Sex: Female

DRUGS (2)
  1. EZETIMIBE. [Concomitant]
     Active Substance: EZETIMIBE
  2. ASCLERA [Suspect]
     Active Substance: POLIDOCANOL
     Indication: VARICOSE VEIN
     Dosage: SEVEN SESSIONS OF TREATMENT
     Route: 042

REACTIONS (5)
  - Hypoaesthesia [Recovered/Resolved]
  - Venous thrombosis limb [Recovered/Resolved]
  - Paradoxical embolism [Recovered/Resolved]
  - Cerebral infarction [Recovered/Resolved]
  - Decreased nasolabial fold [Recovered/Resolved]

NARRATIVE: CASE EVENT DATE: 201704
